FAERS Safety Report 4350866-9 (Version None)
Quarter: 2004Q2

REPORT INFORMATION
  Report Type: 
  Country: None (occurrence: None)
  Receive Date: 20040427
  Receipt Date: 20040415
  Transmission Date: 20050107
  Serious: No
  Sender: FDA-Public Use
  Company Number: 04P-056-0257728-00

PATIENT
  Age: 12 Year
  Sex: Male

DRUGS (1)
  1. DEPAKOTE [Suspect]
     Dosage: 1350 MG, 600 MG IN AM, 750 MG IN PM, PER ORAL
     Route: 048
     Dates: start: 20031201

REACTIONS (1)
  - EPILEPSY [None]
